FAERS Safety Report 5713068-7 (Version None)
Quarter: 2008Q2

REPORT INFORMATION
  Report Type: 
  Country: None (occurrence: None)
  Receive Date: 20080422
  Receipt Date: 20080414
  Transmission Date: 20081010
  Serious: Yes (Hospitalization)
  Sender: FDA-Public Use
  Company Number: JP-ROCHE-555835

PATIENT
  Sex: Male
  Weight: 59.7 kg

DRUGS (19)
  1. CAPECITABINE [Suspect]
     Indication: GASTRIC CANCER
     Dosage: GIVEN ON DAY 1-14 DURING A 3 WEEK CYCLE.
     Route: 048
     Dates: start: 20080328
  2. BLINDED BEVACIZUMAB [Suspect]
     Indication: GASTRIC CANCER
     Dosage: DOSAGE FORM REPORTED AS: INFUSION. GIVEN ON DAY ONE OF A 3 WEEK CYCLE.
     Route: 042
     Dates: start: 20080328
  3. CISPLATIN [Suspect]
     Indication: GASTRIC CANCER
     Dosage: DOSAGE REPORTED AS: INFUSION. GIVEN ON DAY 1 OF A 3 WEEK CYCLE.
     Route: 042
     Dates: start: 20080328
  4. OXYCODONE HYDROCHLORIDE [Concomitant]
     Dates: start: 20080405, end: 20080407
  5. OXYCODONE HYDROCHLORIDE [Concomitant]
     Dosage: REPORTED AS OXYCODONE HYDROCHLORIDE HYDRATE.
     Dates: start: 20080324, end: 20080329
  6. SUCRALFATE [Concomitant]
     Dates: start: 20080402, end: 20080407
  7. SUCRALFATE [Concomitant]
     Dosage: UNIT REPORTED AS ^P^.
     Dates: start: 20080324, end: 20080329
  8. ALUMINUM HYDROXIDE [Concomitant]
     Dosage: REPORTED AS: DRIED ALUMINUM HYDROXIDE GEL/MAGNESIUM HYDROXIDE.
     Dates: start: 20080402, end: 20080407
  9. ALUMINUM HYDROXIDE [Concomitant]
     Dosage: REPORTED AS DRIED ALUMINUM HYDROXIDE. UNIT REPORTED AS ^P^.
     Dates: start: 20080324, end: 20080329
  10. LANSOPRAZOLE [Concomitant]
     Dates: start: 20080402, end: 20080407
  11. LANSOPRAZOLE [Concomitant]
     Dates: start: 20080324, end: 20080329
  12. PROCHLORPERAZINE MALEATE [Concomitant]
     Dates: start: 20080402, end: 20080407
  13. PROCHLORPERAZINE MALEATE [Concomitant]
     Dates: start: 20080324, end: 20080329
  14. MAGNESIUM OXIDE [Concomitant]
     Dates: start: 20080402, end: 20080407
  15. MAGNESIUM OXIDE [Concomitant]
     Dates: start: 20080324, end: 20080329
  16. FLUNITRAZEPAM [Concomitant]
     Dates: start: 20080402, end: 20080407
  17. FLUNITRAZEPAM [Concomitant]
     Dates: start: 20080324, end: 20080329
  18. FERROUS SODIUM CITRATE [Concomitant]
     Dates: start: 20080402, end: 20080407
  19. FERROUS SODIUM CITRATE [Concomitant]
     Dosage: TDD REPORTED AS 100.
     Dates: start: 20080324, end: 20080329

REACTIONS (6)
  - CEREBRAL ARTERY OCCLUSION [None]
  - CEREBRAL ARTERY STENOSIS [None]
  - CEREBRAL INFARCTION [None]
  - HAEMOGLOBIN DECREASED [None]
  - MALLORY-WEISS SYNDROME [None]
  - UPPER GASTROINTESTINAL HAEMORRHAGE [None]
